FAERS Safety Report 8443886-6 (Version None)
Quarter: 2012Q2

REPORT INFORMATION
  Report Type: 
  Country: None (occurrence: None)
  Receive Date: 20120618
  Receipt Date: 20120611
  Transmission Date: 20120825
  Serious: Yes (Death, Life-Threatening, Hospitalization, Other)
  Sender: FDA-Public Use
  Company Number: FR-GENZYME-FLUD-1001494

PATIENT
  Sex: Male

DRUGS (13)
  1. VASTAREL [Concomitant]
     Indication: PRODUCT USED FOR UNKNOWN INDICATION
     Dosage: 35 MG, LP 2X/D
     Route: 065
  2. ACETAMINOPHEN [Concomitant]
     Indication: PRODUCT USED FOR UNKNOWN INDICATION
     Dosage: UNK
     Route: 065
  3. FLUDARA [Suspect]
     Indication: WALDENSTROM'S MACROGLOBULINAEMIA
     Dosage: 40 MG, QD
     Route: 042
     Dates: start: 20120210, end: 20120212
  4. MIRTAZAPINE [Concomitant]
     Indication: PRODUCT USED FOR UNKNOWN INDICATION
     Dosage: 15 MG, 2 TABS 1X/D
     Route: 065
  5. CYCLOPHOSPHAMIDE [Suspect]
     Dosage: UNK
     Route: 065
     Dates: start: 20120319
  6. PRAVASTATIN [Concomitant]
     Indication: PRODUCT USED FOR UNKNOWN INDICATION
     Dosage: 20 MG, UNK
     Route: 065
  7. CYCLOPHOSPHAMIDE [Suspect]
     Indication: WALDENSTROM'S MACROGLOBULINAEMIA
     Dosage: 450 MG, QD
     Route: 042
     Dates: start: 20120210, end: 20120212
  8. LORAZEPAM [Concomitant]
     Indication: PRODUCT USED FOR UNKNOWN INDICATION
     Dosage: UNK
     Route: 065
  9. ZANTAC [Concomitant]
     Indication: PRODUCT USED FOR UNKNOWN INDICATION
     Dosage: 150 MG, 2 TABS 1X/D
     Route: 065
  10. MABTHERA [Suspect]
     Indication: WALDENSTROM'S MACROGLOBULINAEMIA
     Dosage: 650 MG, UNK
     Route: 042
     Dates: start: 20120213, end: 20120213
  11. MABTHERA [Suspect]
     Dosage: UNK
     Route: 065
     Dates: start: 20120322
  12. SOTALOL HCL [Concomitant]
     Indication: PRODUCT USED FOR UNKNOWN INDICATION
     Dosage: 80 MG, QD
     Route: 065
  13. POTASSIUM CHLORIDE [Concomitant]
     Indication: PRODUCT USED FOR UNKNOWN INDICATION
     Dosage: 600 MG, UNK
     Route: 065

REACTIONS (12)
  - DEVICE OCCLUSION [None]
  - LOSS OF CONSCIOUSNESS [None]
  - CORONARY ARTERY OCCLUSION [None]
  - PLEURAL EFFUSION [None]
  - BRADYPNOEA [None]
  - HYPOTENSION [None]
  - CARDIAC ARREST [None]
  - PNEUMOTHORAX [None]
  - DEATH [None]
  - HAEMOLYTIC ANAEMIA [None]
  - ATRIAL FIBRILLATION [None]
  - VENTRICULAR TACHYCARDIA [None]
